FAERS Safety Report 6315362-8 (Version None)
Quarter: 2009Q3

REPORT INFORMATION
  Report Type: 
  Country: None (occurrence: None)
  Receive Date: 20090819
  Receipt Date: 20090811
  Transmission Date: 20100115
  Serious: Yes (Hospitalization)
  Sender: FDA-Public Use
  Company Number: NL-ROCHE-562688

PATIENT
  Sex: Male
  Weight: 56.8 kg

DRUGS (6)
  1. CAPECITABINE [Suspect]
     Dosage: DATE OF LAST DOSE PRIOR TO SAE: 06 MARCH 2008
     Route: 065
     Dates: start: 20080306
  2. CHEMOTHERAPY NOS [Suspect]
     Indication: DRUG USE FOR UNKNOWN INDICATION
     Route: 065
     Dates: start: 20080302, end: 20080428
  3. OMEPRAZOL [Concomitant]
     Dosage: DOSE: 2 X 40 MG
  4. METOCLOPRAMIDE [Concomitant]
     Route: 048
  5. MOVICOLON [Concomitant]
     Dosage: DOSE REPORTED AS : 1 SACHET /DAY
     Route: 048
  6. NEXIUM [Concomitant]
     Route: 048
     Dates: end: 20080307

REACTIONS (9)
  - ABDOMINAL PAIN [None]
  - ABSCESS [None]
  - DECREASED APPETITE [None]
  - DIARRHOEA [None]
  - GASTROINTESTINAL MOTILITY DISORDER [None]
  - LYMPHORRHOEA [None]
  - MALNUTRITION [None]
  - NAUSEA [None]
  - VOMITING [None]
